FAERS Safety Report 6770440-4 (Version None)
Quarter: 2010Q2

REPORT INFORMATION
  Report Type: 
  Country: None (occurrence: None)
  Receive Date: 20100615
  Receipt Date: 20100603
  Transmission Date: 20101027
  Serious: Yes (Other)
  Sender: FDA-Public Use
  Company Number: US-PFIZER INC-2010070261

PATIENT
  Sex: Female

DRUGS (3)
  1. ZOLOFT [Suspect]
     Indication: DEPRESSION
     Dosage: 200 MG, 1X/DAY
     Route: 048
     Dates: start: 20080101
  2. CYMBALTA [Suspect]
     Dosage: UNK
  3. ADVAIR DISKUS 100/50 [Concomitant]
     Dosage: UNK

REACTIONS (4)
  - ABDOMINAL DISTENSION [None]
  - CHRONIC OBSTRUCTIVE PULMONARY DISEASE [None]
  - THROAT IRRITATION [None]
  - THROAT TIGHTNESS [None]
